FAERS Safety Report 8505534-6 (Version None)
Quarter: 2012Q3

REPORT INFORMATION
  Report Type: 
  Country: None (occurrence: None)
  Receive Date: 20120712
  Receipt Date: 20120703
  Transmission Date: 20120928
  Serious: Yes (Hospitalization)
  Sender: FDA-Public Use
  Company Number: DE-JNJFOC-20120702768

PATIENT
  Age: 36 Year
  Sex: Female

DRUGS (6)
  1. LEVOMEPROMAZINE [Suspect]
     Indication: SCHIZOPHRENIA, CATATONIC TYPE
     Dosage: 20 AND 30 MG PER DAY
     Route: 048
  2. HALOPERIDOL [Suspect]
     Indication: SCHIZOPHRENIA, CATATONIC TYPE
     Route: 065
  3. DIAZEPAM [Suspect]
     Route: 048
  4. BENPERIDOL [Suspect]
     Indication: SCHIZOPHRENIA, CATATONIC TYPE
     Route: 048
  5. IBUPROFEN [Suspect]
     Indication: SCHIZOPHRENIA, CATATONIC TYPE
     Dosage: 20 AND 30 MG PER DAY
     Route: 048
  6. DIAZEPAM [Suspect]
     Indication: SCHIZOPHRENIA, CATATONIC TYPE
     Dosage: 20 AND 30 MG PER DAY
     Route: 048

REACTIONS (1)
  - HYPOTHERMIA [None]
